FAERS Safety Report 19373966 (Version 1)
Quarter: 2021Q2

REPORT INFORMATION
  Report Type: Spontaneous
  Country: US (occurrence: MX)
  Receive Date: 20210603
  Receipt Date: 20210603
  Transmission Date: 20210717
  Serious: Yes (Other)
  Sender: FDA-Public Use
  Company Number: MX-BIOMARINAP-MX-2021-136816

PATIENT
  Age: 8 Year
  Sex: Female

DRUGS (1)
  1. ALDURAZYME [Suspect]
     Active Substance: LARONIDASE
     Indication: MUCOPOLYSACCHARIDOSIS I
     Dosage: 8 DOSAGE FORM, QOW
     Route: 041
     Dates: start: 2014

REACTIONS (5)
  - Loss of consciousness [Recovered/Resolved]
  - Head injury [Recovered/Resolved]
  - Pyrexia [Recovered/Resolved]
  - Obstructive airways disorder [Recovered/Resolved]
  - Varicella [Not Recovered/Not Resolved]

NARRATIVE: CASE EVENT DATE: 20210522
